FAERS Safety Report 24964529 (Version 1)
Quarter: 2025Q1

REPORT INFORMATION
  Report Type: Spontaneous
  Country: FR (occurrence: FR)
  Receive Date: 20250213
  Receipt Date: 20250213
  Transmission Date: 20250409
  Serious: Yes (Life-Threatening, Hospitalization, Other)
  Sender: AUROBINDO
  Company Number: FR-009507513-2501FRA007079

PATIENT
  Age: 57 Year
  Sex: Male
  Weight: 71 kg

DRUGS (13)
  1. MEROPENEM [Suspect]
     Active Substance: MEROPENEM
     Indication: Product used for unknown indication
     Route: 065
  2. CANCIDAS [Suspect]
     Active Substance: CASPOFUNGIN ACETATE
     Indication: Product used for unknown indication
     Route: 065
  3. NILOTINIB [Suspect]
     Active Substance: NILOTINIB
     Indication: Acute lymphocytic leukaemia
     Route: 048
     Dates: start: 20181110
  4. SPIRAMYCIN [Suspect]
     Active Substance: SPIRAMYCIN
     Indication: Product used for unknown indication
     Route: 065
  5. CYTARABINE [Concomitant]
     Active Substance: CYTARABINE
     Indication: Product used for unknown indication
     Route: 065
     Dates: start: 20190109
  6. METHOTREXATE [Concomitant]
     Active Substance: METHOTREXATE
     Indication: Product used for unknown indication
     Route: 065
     Dates: start: 20190107
  7. DEPO-MEDROL [Concomitant]
     Active Substance: METHYLPREDNISOLONE ACETATE
     Indication: Product used for unknown indication
     Route: 065
     Dates: start: 20190215
  8. FILGRASTIM [Concomitant]
     Active Substance: FILGRASTIM
     Indication: Product used for unknown indication
     Route: 065
     Dates: start: 20190111
  9. KARDAK [Concomitant]
     Indication: Product used for unknown indication
     Route: 065
     Dates: start: 20190111
  10. TAHOR [Concomitant]
     Active Substance: ATORVASTATIN CALCIUM
     Indication: Product used for unknown indication
     Route: 065
  11. ZENRIZ [Concomitant]
     Indication: Product used for unknown indication
     Route: 065
     Dates: start: 20151107
  12. BACTRIM [Concomitant]
     Active Substance: SULFAMETHOXAZOLE\TRIMETHOPRIM
     Indication: Product used for unknown indication
     Route: 065
     Dates: start: 20181107
  13. LANTUS [Concomitant]
     Active Substance: INSULIN GLARGINE
     Indication: Product used for unknown indication
     Route: 065

REACTIONS (3)
  - Lung disorder [Recovered/Resolved]
  - Febrile neutropenia [Unknown]
  - Hepatic cytolysis [Recovered/Resolved]

NARRATIVE: CASE EVENT DATE: 20190222
